FAERS Safety Report 24108715 (Version 1)
Quarter: 2024Q3

REPORT INFORMATION
  Report Type: Spontaneous
  Country: LT (occurrence: LT)
  Receive Date: 20240718
  Receipt Date: 20240718
  Transmission Date: 20241017
  Serious: Yes (Other)
  Sender: RANBAXY
  Company Number: LT-SUN PHARMACEUTICAL INDUSTRIES LTD-2024R1-457601

PATIENT
  Age: 53 Year
  Sex: Male

DRUGS (4)
  1. HALOPERIDOL [Suspect]
     Active Substance: HALOPERIDOL
     Indication: Paraneoplastic neurological syndrome
     Dosage: 10 MILLIGRAM/CONTINUED FOR 10 DAYS
     Route: 065
  2. OLANZAPINE [Suspect]
     Active Substance: OLANZAPINE
     Indication: Paraneoplastic neurological syndrome
     Dosage: 10 MILLIGRAM/CONTINUED FOR 20 DAYS
     Route: 065
  3. QUETIAPINE [Suspect]
     Active Substance: QUETIAPINE
     Indication: Paraneoplastic neurological syndrome
     Dosage: 100 MILLIGRAM/CONTINUED FOR 14 DAYS
     Route: 065
  4. TIAPRIDE [Suspect]
     Active Substance: TIAPRIDE
     Indication: Paraneoplastic neurological syndrome
     Dosage: 300 MILLIGRAM/CONTINUED FOR 10 DAYS
     Route: 065

REACTIONS (1)
  - Drug resistance [Unknown]
